FAERS Safety Report 9633453 (Version 1)
Quarter: 2013Q4

REPORT INFORMATION
  Report Type: Spontaneous
  Country: US (occurrence: None)
  Receive Date: 20131018
  Receipt Date: 20131018
  Transmission Date: 20140711
  Serious: Yes (Hospitalization)
  Sender: FDA-Public Use
  Company Number: None

PATIENT
  Age: 89 Year
  Sex: Female
  Weight: 49.9 kg

DRUGS (14)
  1. ELIQUIS [Suspect]
     Indication: ANTICOAGULANT THERAPY
     Dosage: 2 PILLS PER DAY; 1 IN AM 1 IN PM; BY MOUTH
     Route: 048
     Dates: start: 20130513, end: 20130712
  2. BENAZEPRIL [Concomitant]
  3. CAREDILOL [Concomitant]
  4. KEPPRA XR [Concomitant]
  5. LEVOTHORIN [Concomitant]
  6. SOTAOL [Concomitant]
  7. ALLEGRA [Concomitant]
  8. BABY ASPRIN [Concomitant]
  9. CALTRATE 600 +D [Concomitant]
  10. CENTRUM SILVER [Concomitant]
  11. LUTEIN [Concomitant]
  12. EYE DROP [Concomitant]
  13. OCEAN SPRAY [Concomitant]
  14. WARFARIN [Concomitant]

REACTIONS (5)
  - Dyspnoea [None]
  - Pulmonary oedema [None]
  - Blood iron decreased [None]
  - Blood potassium decreased [None]
  - Hypersensitivity [None]
